FAERS Safety Report 12742170 (Version 1)
Quarter: 2016Q3

REPORT INFORMATION
  Report Type: Spontaneous
  Country: US (occurrence: US)
  Receive Date: 20160913
  Receipt Date: 20160913
  Transmission Date: 20161109
  Serious: Yes (Hospitalization, Disabling, Other)
  Sender: FDA-Public Use
  Company Number: None

PATIENT
  Age: 90 Year
  Sex: Female
  Weight: 48.54 kg

DRUGS (2)
  1. COMFORT SHIELD BARRIER [Suspect]
     Active Substance: DIMETHICONE
     Indication: THERAPEUTIC SKIN CARE TOPICAL
     Dosage: SAGE BARRIER CREAM WIPES - 24 COUNT - 3 PACKS; 24 COUNT - 1 PACK - FREQ.?AFTER EACH BOWEL MOVEMENT URINE DIAPERS
     Route: 061
     Dates: start: 20160811, end: 20160901
  2. CLEARTRACT [Concomitant]

REACTIONS (4)
  - Cellulitis [None]
  - Infection [None]
  - Diarrhoea [None]
  - Product use issue [None]

NARRATIVE: CASE EVENT DATE: 20160811
